FAERS Safety Report 9929453 (Version 4)
Quarter: 2014Q2

REPORT INFORMATION
  Report Type: Spontaneous
  Country: US (occurrence: US)
  Receive Date: 20140227
  Receipt Date: 20140414
  Transmission Date: 20141212
  Serious: Yes (Death, Hospitalization)
  Sender: FDA-Public Use
  Company Number: US-GLAXOSMITHKLINE-A1061522A

PATIENT
  Age: 69 Year
  Sex: Female

DRUGS (3)
  1. PROPAFENONE HYDROCHLORIDE [Suspect]
     Indication: PRODUCT USED FOR UNKNOWN INDICATION
     Dosage: 225MG TWICE PER DAY
     Route: 048
  2. UNKNOWN [Concomitant]
  3. ATENOLOL [Concomitant]

REACTIONS (4)
  - Cardiac arrest [Unknown]
  - Coma [Unknown]
  - Death [Fatal]
  - Brain death [Unknown]
